FAERS Safety Report 7349877-0 (Version None)
Quarter: 2011Q1

REPORT INFORMATION
  Report Type: 
  Country: None (occurrence: None)
  Receive Date: 20110314
  Receipt Date: 20110310
  Transmission Date: 20110831
  Serious: Yes (Hospitalization)
  Sender: FDA-Public Use
  Company Number: CO-ROCHE-747131

PATIENT
  Sex: Female

DRUGS (3)
  1. ACTEMRA [Suspect]
     Route: 042
     Dates: start: 20101206
  2. ACTEMRA [Suspect]
     Route: 042
     Dates: start: 20110123
  3. ACTEMRA [Suspect]
     Indication: RHEUMATOID ARTHRITIS
     Route: 042
     Dates: start: 20101108

REACTIONS (6)
  - VOMITING [None]
  - DECREASED APPETITE [None]
  - GASTRIC ULCER [None]
  - ABDOMINAL PAIN [None]
  - ARTHRALGIA [None]
  - HAEMATEMESIS [None]
